FAERS Safety Report 22006681 (Version 1)
Quarter: 2023Q1

REPORT INFORMATION
  Report Type: Spontaneous
  Country: US (occurrence: US)
  Receive Date: 20230217
  Receipt Date: 20230217
  Transmission Date: 20230417
  Serious: No
  Sender: FDA-Public Use
  Company Number: US-BRISTOL-MYERS SQUIBB COMPANY-2023-021600

PATIENT
  Age: 31 Year
  Sex: Male

DRUGS (1)
  1. ZEPOSIA [Suspect]
     Active Substance: OZANIMOD HYDROCHLORIDE
     Indication: Inflammatory bowel disease
     Route: 048
     Dates: start: 20221228

REACTIONS (5)
  - Drug ineffective for unapproved indication [Unknown]
  - Sleep disorder [Unknown]
  - Pain [Unknown]
  - Discomfort [Unknown]
  - Off label use [Unknown]
